FAERS Safety Report 4760171-4 (Version None)
Quarter: 2005Q3

REPORT INFORMATION
  Report Type: 
  Country: None (occurrence: None)
  Receive Date: 20050831
  Receipt Date: 20050831
  Transmission Date: 20060218
  Serious: Yes (Other)
  Sender: FDA-Public Use
  Company Number: None

PATIENT
  Age: 81 Year
  Sex: Male
  Weight: 80.7403 kg

DRUGS (2)
  1. FLOVENT HFA [Suspect]
     Indication: ASTHMA
     Dosage: TWO PUFFS IN THE MORNING AND TWO PUFFS IN THE EVENING (THERAPY DATES/DURATION:  20 YEARS AGO)
     Route: 055
  2. FLOVENT HFA [Suspect]

REACTIONS (5)
  - COUGH [None]
  - DRUG INEFFECTIVE [None]
  - PHARMACEUTICAL PRODUCT COMPLAINT [None]
  - PHARYNGOLARYNGEAL PAIN [None]
  - RESPIRATORY DISORDER [None]
